FAERS Safety Report 24287023 (Version 1)
Quarter: 2024Q3

REPORT INFORMATION
  Report Type: Spontaneous
  Country: US (occurrence: US)
  Receive Date: 20240905
  Receipt Date: 20240905
  Transmission Date: 20241017
  Serious: Yes (Disabling, Other)
  Sender: ABBVIE
  Company Number: US-ABBVIE-5905708

PATIENT

DRUGS (1)
  1. ARMOUR THYROID [Suspect]
     Active Substance: THYROID, PORCINE
     Indication: Product used for unknown indication
     Route: 048

REACTIONS (6)
  - Disability [Not Recovered/Not Resolved]
  - Coronary artery occlusion [Unknown]
  - Hepatic cirrhosis [Unknown]
  - Multiple organ dysfunction syndrome [Not Recovered/Not Resolved]
  - Hypothyroidism [Unknown]
  - Fatigue [Not Recovered/Not Resolved]
